FAERS Safety Report 5053109-6 (Version None)
Quarter: 2006Q3

REPORT INFORMATION
  Report Type: 
  Country: None (occurrence: None)
  Receive Date: 20060717
  Receipt Date: 20060706
  Transmission Date: 20061208
  Serious: Yes (Other)
  Sender: FDA-Public Use
  Company Number: US-SANOFI-SYNTHELABO-A03200604351

PATIENT
  Sex: Female

DRUGS (1)
  1. AMBIEN [Suspect]
     Indication: INSOMNIA
     Route: 048
     Dates: start: 20000101

REACTIONS (9)
  - DRUG ABUSER [None]
  - DRUG INEFFECTIVE [None]
  - EATING DISORDER [None]
  - ILL-DEFINED DISORDER [None]
  - INJURY [None]
  - ROAD TRAFFIC ACCIDENT [None]
  - SLEEP TALKING [None]
  - SLEEP WALKING [None]
  - WEIGHT INCREASED [None]
